FAERS Safety Report 9251259 (Version 1)
Quarter: 2013Q2

REPORT INFORMATION
  Report Type: Spontaneous
  Country: US (occurrence: US)
  Receive Date: 20130424
  Receipt Date: 20130424
  Transmission Date: 20140414
  Serious: No
  Sender: FDA-Public Use
  Company Number: US-BAYER-2013-046994

PATIENT
  Age: 62 Year
  Sex: Male

DRUGS (1)
  1. GADAVIST [Suspect]
     Indication: INVESTIGATION
     Dosage: UNK
     Route: 042
     Dates: start: 20130221, end: 20130221

REACTIONS (3)
  - Nausea [None]
  - Dyspnoea [None]
  - Cough [None]
